FAERS Safety Report 7744274-8 (Version None)
Quarter: 2011Q3

REPORT INFORMATION
  Report Type: 
  Country: None (occurrence: None)
  Receive Date: 20110912
  Receipt Date: 20110901
  Transmission Date: 20111222
  Serious: Yes (Death)
  Sender: FDA-Public Use
  Company Number: US-GENZYME-CLOF-1001741

PATIENT
  Sex: Male
  Weight: 91.7 kg

DRUGS (8)
  1. IDARUBICIN HCL [Suspect]
     Dosage: 19 MG, QDX3
     Route: 065
     Dates: start: 20110325, end: 20110327
  2. CYTARABINE [Suspect]
     Indication: ACUTE MYELOID LEUKAEMIA
     Dosage: 1.87 G, QDX5
     Route: 065
     Dates: start: 20110304, end: 20110308
  3. CYTARABINE [Suspect]
     Dosage: 1.87 G, QDX5
     Route: 065
     Dates: start: 20110325, end: 20110329
  4. AMBISOM [Concomitant]
     Indication: INFECTION
     Dosage: UNK, QD
     Route: 065
  5. VALTREX [Concomitant]
     Indication: INFECTION
     Dosage: UNK, QD
     Route: 065
     Dates: start: 20110323, end: 20110331
  6. CLOLAR [Suspect]
     Indication: ACUTE MYELOID LEUKAEMIA
     Dosage: 37 MG, QDX5
     Route: 065
     Dates: start: 20110304, end: 20110308
  7. CLOLAR [Suspect]
     Dosage: 37 MG, QDX5
     Route: 065
     Dates: start: 20110325, end: 20110329
  8. IDARUBICIN HCL [Suspect]
     Indication: ACUTE MYELOID LEUKAEMIA
     Dosage: 19 MG, QDX3
     Route: 065
     Dates: start: 20110304, end: 20110306

REACTIONS (1)
  - STEVENS-JOHNSON SYNDROME [None]
